FAERS Safety Report 4369035-1 (Version None)
Quarter: 2004Q2

REPORT INFORMATION
  Report Type: 
  Country: None (occurrence: None)
  Receive Date: 20040525
  Receipt Date: 20040511
  Transmission Date: 20050107
  Serious: Yes (Other)
  Sender: FDA-Public Use
  Company Number: EMADSS2003000008

PATIENT
  Age: 36 Year
  Sex: Male
  Weight: 99 kg

DRUGS (6)
  1. REMICADE [Suspect]
     Indication: ASTHMA
     Dosage: 5 MG/KG, 1 IN 1 AS NECESSARY, INTRAVENOUS DRIP
     Route: 041
     Dates: start: 20021202, end: 20021202
  2. REMICADE [Suspect]
     Indication: ASTHMA
     Dosage: 5 MG/KG, 1 IN 1 AS NECESSARY, INTRAVENOUS DRIP
     Route: 041
     Dates: start: 20021217, end: 20021217
  3. SINGULAIR (MONTELUKAST SODIUM) UNSPECIFIED [Concomitant]
  4. DEROXAT (PAROXETINE HYDROCHLORIDE) TABLETS [Concomitant]
  5. IPRATROPIUM (IPRATROPIUM) UNSPECIFIED [Concomitant]
  6. TERBUTALINE (TERBUTALINE) UNSPECIFIED [Concomitant]

REACTIONS (1)
  - ASTHMA [None]
